FAERS Safety Report 7474655-1 (Version None)
Quarter: 2011Q2

REPORT INFORMATION
  Report Type: 
  Country: None (occurrence: None)
  Receive Date: 20110505
  Receipt Date: 20110423
  Transmission Date: 20111010
  Serious: Yes (Other)
  Sender: FDA-Public Use
  Company Number: FR-ACCORD-008177

PATIENT
  Age: 66 Year
  Sex: Male

DRUGS (1)
  1. MITOMYCIN [Suspect]
     Indication: PRODUCT USED FOR UNKNOWN INDICATION
     Dosage: 40.00-MG / INTRAVESICAL
     Route: 043

REACTIONS (2)
  - BLADDER NECROSIS [None]
  - FISTULA [None]
